FAERS Safety Report 6674288-0 (Version None)
Quarter: 2010Q2

REPORT INFORMATION
  Report Type: 
  Country: None (occurrence: None)
  Receive Date: 20100409
  Receipt Date: 20100330
  Transmission Date: 20101027
  Serious: Yes (Hospitalization)
  Sender: FDA-Public Use
  Company Number: JP-JNJFOC-20100303841

PATIENT
  Sex: Female
  Weight: 60 kg

DRUGS (12)
  1. DOXIL [Suspect]
     Indication: OVARIAN CANCER RECURRENT
     Route: 042
  2. DOGMATYL [Concomitant]
     Route: 048
  3. ATARAX [Concomitant]
     Route: 048
  4. RINDERON [Concomitant]
     Route: 048
  5. LANSOPRAZOLE [Concomitant]
     Route: 048
  6. OLMESARTAN MEDOXOMIL [Concomitant]
     Route: 048
  7. ATELEC [Concomitant]
     Route: 048
  8. LIPITOR [Concomitant]
     Route: 048
  9. MAGNESIUM OXIDE [Concomitant]
     Route: 048
  10. GOREISAN [Concomitant]
     Route: 048
  11. METOCLOPRAMIDE HYDROCHLORIDE [Concomitant]
     Route: 048
  12. CALONAL [Concomitant]
     Route: 048

REACTIONS (1)
  - INTERSTITIAL LUNG DISEASE [None]
